FAERS Safety Report 7585449-0 (Version None)
Quarter: 2011Q2

REPORT INFORMATION
  Report Type: 
  Country: None (occurrence: None)
  Receive Date: 20110628
  Receipt Date: 20110628
  Transmission Date: 20111010
  Serious: Yes (Disabling, Other)
  Sender: FDA-Public Use
  Company Number: None

PATIENT
  Age: 26 Year
  Sex: Female
  Weight: 58.9676 kg

DRUGS (1)
  1. CYCLESSA [Suspect]
     Indication: CONTRACEPTION
     Dates: start: 20041201, end: 20110627

REACTIONS (8)
  - ALOPECIA [None]
  - BREAST TENDERNESS [None]
  - ACNE [None]
  - DEPRESSION [None]
  - INCREASED APPETITE [None]
  - SEBORRHOEA [None]
  - FATIGUE [None]
  - WEIGHT INCREASED [None]
